FAERS Safety Report 25665282 (Version 1)
Quarter: 2025Q3

REPORT INFORMATION
  Report Type: Spontaneous
  Country: GB (occurrence: GB)
  Receive Date: 20250811
  Receipt Date: 20250811
  Transmission Date: 20251021
  Serious: Yes (Disabling)
  Sender: MYLAN
  Company Number: None

PATIENT
  Age: 77 Year
  Sex: Male

DRUGS (8)
  1. CANDESARTAN [Suspect]
     Active Substance: CANDESARTAN
     Indication: Product used for unknown indication
     Route: 065
  2. CANDESARTAN [Suspect]
     Active Substance: CANDESARTAN
  3. CANDESARTAN [Suspect]
     Active Substance: CANDESARTAN
  4. CANDESARTAN [Suspect]
     Active Substance: CANDESARTAN
     Route: 065
  5. CANDESARTAN [Suspect]
     Active Substance: CANDESARTAN
     Route: 065
  6. CANDESARTAN [Suspect]
     Active Substance: CANDESARTAN
  7. CANDESARTAN [Suspect]
     Active Substance: CANDESARTAN
  8. CANDESARTAN [Suspect]
     Active Substance: CANDESARTAN
     Route: 065

REACTIONS (1)
  - Dyspnoea [Recovering/Resolving]
